FAERS Safety Report 8068933-5 (Version None)
Quarter: 2012Q1

REPORT INFORMATION
  Report Type: 
  Country: None (occurrence: None)
  Receive Date: 20120118
  Receipt Date: 20120106
  Transmission Date: 20120608
  Serious: Yes (Other)
  Sender: FDA-Public Use
  Company Number: 1000027066

PATIENT
  Age: 37 Year
  Sex: Female

DRUGS (2)
  1. SPASFON (PHLOROGLUCINOL, TRIMETHYLPHLOROGLUCINOL) [Suspect]
     Indication: PAIN
     Dosage: 2 DOSAGE FORM (2 DOSAGE FORMS,1 IN 1 D),ORAL
     Route: 048
     Dates: start: 20120105, end: 20120105
  2. FOSFOMYCIN (FOFOMYCIN TROMETAMOL) (3 GRAM, GRANULATE) [Suspect]
     Indication: URINARY TRACT INFECTION
     Dosage: (3 GM,ONCE),ORAL
     Route: 048
     Dates: start: 20120105, end: 20120105

REACTIONS (3)
  - BACK PAIN [None]
  - MALAISE [None]
  - LOSS OF CONSCIOUSNESS [None]
